FAERS Safety Report 12904207 (Version 1)
Quarter: 2016Q4

REPORT INFORMATION
  Report Type: Spontaneous
  Country: US (occurrence: US)
  Receive Date: 20161101
  Receipt Date: 20161101
  Transmission Date: 20170207
  Serious: Yes (Other)
  Sender: FDA-Public Use
  Company Number: None

PATIENT
  Sex: Male

DRUGS (2)
  1. MYCOPHENOLATE 250MG TEVA [Suspect]
     Active Substance: MYCOPHENOLIC ACID
     Indication: TRANSPLANT
     Route: 048
     Dates: start: 20150324
  2. CYCLOSPOR MODIF 25MG TEVA [Suspect]
     Active Substance: CYCLOSPORINE
     Indication: TRANSPLANT
     Route: 048
     Dates: start: 20140308

REACTIONS (1)
  - Cerebrovascular accident [None]
